FAERS Safety Report 9714006 (Version 2)
Quarter: 2015Q3

REPORT INFORMATION
  Report Type: Spontaneous
  Country: US (occurrence: US)
  Receive Date: 20131126
  Receipt Date: 20150803
  Transmission Date: 20151125
  Serious: No
  Sender: FDA-Public Use
  Company Number: US-GILEAD-2008-0018502

PATIENT
  Age: 70 Year
  Sex: Female
  Weight: 108.86 kg

DRUGS (16)
  1. PROPRANOLOL [Concomitant]
     Active Substance: PROPRANOLOL\PROPRANOLOL HYDROCHLORIDE
  2. BYETTA [Concomitant]
     Active Substance: EXENATIDE
  3. LETAIRIS [Suspect]
     Active Substance: AMBRISENTAN
     Indication: PULMONARY ARTERIAL HYPERTENSION
     Route: 048
     Dates: start: 20080920
  4. ADVAIR HFA [Concomitant]
     Active Substance: FLUTICASONE PROPIONATE\SALMETEROL XINAFOATE
  5. OMEPRAZOLE. [Concomitant]
     Active Substance: OMEPRAZOLE
  6. DARVOCET [Concomitant]
     Active Substance: ACETAMINOPHEN\PROPOXYPHENE HYDROCHLORIDE
  7. SIMVASTATIN. [Concomitant]
     Active Substance: SIMVASTATIN
  8. ACTOS [Concomitant]
     Active Substance: PIOGLITAZONE HYDROCHLORIDE
  9. LANTUS [Concomitant]
     Active Substance: INSULIN GLARGINE
  10. TYLENOL [Concomitant]
     Active Substance: ACETAMINOPHEN
  11. BENGAY ARTHRITIS PAIN RELIEVING [Concomitant]
     Active Substance: MENTHOL\METHYL SALICYLATE
  12. BUMETADINE [Concomitant]
  13. PLAVIX [Concomitant]
     Active Substance: CLOPIDOGREL BISULFATE
  14. SILVADENE [Suspect]
     Active Substance: SILVER SULFADIAZINE
  15. LEVOXYL [Concomitant]
     Active Substance: LEVOTHYROXINE SODIUM
  16. NITROGLYCERIN. [Concomitant]
     Active Substance: NITROGLYCERIN

REACTIONS (3)
  - Rash [None]
  - Blister [None]
  - Pruritus [None]
